FAERS Safety Report 7374179-6 (Version None)
Quarter: 2011Q1

REPORT INFORMATION
  Report Type: 
  Country: None (occurrence: None)
  Receive Date: 20110317
  Receipt Date: 20110228
  Transmission Date: 20110831
  Serious: Yes (Other)
  Sender: FDA-Public Use
  Company Number: 2011SE07877

PATIENT
  Age: 35 Year
  Sex: Female

DRUGS (7)
  1. PREDNISOLONE [Concomitant]
  2. IMMUNOSUPPRESSANTS [Concomitant]
  3. TACROLIMUS HYDRATE [Concomitant]
  4. BLOPRESS (CANDESARTAN CILEXETIL) [Concomitant]
  5. MYCOPHENOLATE MOFETIL [Concomitant]
  6. OMEPRAZOLE [Concomitant]
  7. FOSCAVIR [Suspect]
     Dosage: INTRAVENOUS DRIP, FORMULATION: INJECTION
     Route: 041
     Dates: start: 20100514, end: 20100521

REACTIONS (2)
  - TUBULOINTERSTITIAL NEPHRITIS [None]
  - KIDNEY FIBROSIS [None]
